FAERS Safety Report 13845441 (Version 1)
Quarter: 2017Q3

REPORT INFORMATION
  Report Type: Spontaneous
  Country: GD (occurrence: GD)
  Receive Date: 20170808
  Receipt Date: 20170808
  Transmission Date: 20171127
  Serious: Yes (Other)
  Sender: FDA-Public Use
  Company Number: GD-MYLANLABS-2017M1048652

PATIENT

DRUGS (1)
  1. LIDOCAINE. [Suspect]
     Active Substance: LIDOCAINE
     Indication: LABOUR INDUCTION
     Route: 058

REACTIONS (2)
  - Pneumocephalus [Recovered/Resolved]
  - Maternal exposure during pregnancy [Recovered/Resolved]
